FAERS Safety Report 13581584 (Version 1)
Quarter: 2017Q2

REPORT INFORMATION
  Report Type: Spontaneous
  Country: IT (occurrence: IT)
  Receive Date: 20170525
  Receipt Date: 20170525
  Transmission Date: 20170830
  Serious: Yes (Other)
  Sender: FDA-Public Use
  Company Number: IT-SUN PHARMACEUTICAL INDUSTRIES LTD-2017RR-141329

PATIENT
  Age: 55 Year
  Sex: Male

DRUGS (3)
  1. PREGABALIN. [Suspect]
     Active Substance: PREGABALIN
     Indication: HEPATIC PAIN
     Dosage: 225 MG DAILY
     Route: 065
  2. NALOXONE [Suspect]
     Active Substance: NALOXONE
     Indication: HEPATIC PAIN
     Route: 065
  3. OXYCODONE [Suspect]
     Active Substance: OXYCODONE
     Indication: HEPATIC PAIN
     Route: 065

REACTIONS (1)
  - Drug ineffective [Unknown]
